FAERS Safety Report 15474420 (Version 2)
Quarter: 2020Q1

REPORT INFORMATION
  Report Type: Spontaneous
  Country: US (occurrence: US)
  Receive Date: 20181008
  Receipt Date: 20200304
  Transmission Date: 20200409
  Serious: Yes (Hospitalization, Other)
  Sender: FDA-Public Use
  Company Number: US-009507513-1810USA000747

PATIENT
  Age: 37 Year
  Sex: Female

DRUGS (3)
  1. AXITINIB [Concomitant]
     Active Substance: AXITINIB
     Indication: ALVEOLAR SOFT PART SARCOMA METASTATIC
  2. KEYTRUDA [Suspect]
     Active Substance: PEMBROLIZUMAB
     Indication: ALVEOLAR SOFT PART SARCOMA METASTATIC
     Dosage: UNK, CYCLICAL
  3. KEYTRUDA [Suspect]
     Active Substance: PEMBROLIZUMAB
     Dosage: RECEIVE FOR FIVE MONTHS AFTER THE INITIAL EVENT

REACTIONS (1)
  - Autoimmune myocarditis [Recovered/Resolved]
